FAERS Safety Report 15824828 (Version 1)
Quarter: 2019Q1

REPORT INFORMATION
  Report Type: Report from Study
  Country: None (occurrence: IE)
  Receive Date: 20190115
  Receipt Date: 20190115
  Transmission Date: 20190417
  Serious: Yes (Hospitalization)
  Sender: FDA-Public Use
  Company Number: IE-ABBVIE-19S-229-2615001-00

PATIENT
  Age: 8 Month
  Sex: Female

DRUGS (7)
  1. ABIDEC [Concomitant]
     Indication: PRODUCT USED FOR UNKNOWN INDICATION
     Route: 050
  2. LOSEC [Concomitant]
     Active Substance: OMEPRAZOLE
     Indication: PRODUCT USED FOR UNKNOWN INDICATION
     Route: 050
  3. SYNAGIS [Suspect]
     Active Substance: PALIVIZUMAB
     Indication: PREMATURE BABY
     Dosage: FIRST SEASON
     Route: 030
     Dates: start: 20181010, end: 20181010
  4. SYNAGIS [Suspect]
     Active Substance: PALIVIZUMAB
     Dosage: FIRST SEASON
     Route: 030
     Dates: start: 20181205, end: 20181205
  5. SYNAGIS [Suspect]
     Active Substance: PALIVIZUMAB
     Route: 030
     Dates: start: 20190109
  6. GALFER [Concomitant]
     Active Substance: IRON
     Indication: PRODUCT USED FOR UNKNOWN INDICATION
     Route: 050
  7. SYNAGIS [Suspect]
     Active Substance: PALIVIZUMAB
     Dosage: FIRST SEASON
     Route: 030
     Dates: start: 20181107, end: 20181107

REACTIONS (2)
  - Product dose omission [Unknown]
  - Surgery [Unknown]

NARRATIVE: CASE EVENT DATE: 20181231
